FAERS Safety Report 4463103-1 (Version None)
Quarter: 2004Q3

REPORT INFORMATION
  Report Type: 
  Country: None (occurrence: None)
  Receive Date: 20040928
  Receipt Date: 20040920
  Transmission Date: 20050211
  Serious: Yes (Hospitalization)
  Sender: FDA-Public Use
  Company Number: 185571

PATIENT
  Age: 57 Year
  Sex: Female
  Weight: 58.0604 kg

DRUGS (4)
  1. AVONEX [Suspect]
     Indication: MULTIPLE SCLEROSIS
     Dosage: 30 MCG QW IM
     Route: 030
     Dates: start: 20030307, end: 20030101
  2. AVONEX [Suspect]
     Indication: MULTIPLE SCLEROSIS
     Dosage: 30 MCG QW IM
     Route: 030
     Dates: start: 20030101
  3. TEGRETOL [Concomitant]
  4. DICYCLOMINE HYDROCHLORIDE [Concomitant]

REACTIONS (4)
  - COMPUTERISED TOMOGRAM ABNORMAL [None]
  - DIFFICULTY IN WALKING [None]
  - URINARY TRACT OBSTRUCTION [None]
  - VISION BLURRED [None]
